FAERS Safety Report 4431169-0 (Version None)
Quarter: 2004Q3

REPORT INFORMATION
  Report Type: 
  Country: None (occurrence: None)
  Receive Date: 20040818
  Receipt Date: 20040804
  Transmission Date: 20050211
  Serious: Yes (Death)
  Sender: FDA-Public Use
  Company Number: SUSI-2004-00445

PATIENT
  Age: 57 Year
  Sex: Female

DRUGS (1)
  1. PROAMATINE [Suspect]
     Indication: ORTHOSTATIC HYPOTENSION
     Dosage: SEE IMAGE
     Route: 048
     Dates: start: 20040731, end: 20040803

REACTIONS (4)
  - APNOEA [None]
  - DYSPNOEA [None]
  - OVARIAN CANCER [None]
  - SNORING [None]
